FAERS Safety Report 4992903-4 (Version None)
Quarter: 2006Q2

REPORT INFORMATION
  Report Type: 
  Country: None (occurrence: None)
  Receive Date: 20060504
  Receipt Date: 20060425
  Transmission Date: 20061013
  Serious: Yes (Hospitalization)
  Sender: FDA-Public Use
  Company Number: US-MERCK-0604USA04009

PATIENT
  Age: 69 Year
  Sex: Female
  Weight: 85 kg

DRUGS (8)
  1. VIOXX [Suspect]
     Indication: ARTHRITIS
     Route: 048
     Dates: start: 19990501, end: 20040901
  2. GLUCOPHAGE [Concomitant]
     Route: 065
  3. LEVAQUIN [Concomitant]
     Route: 065
  4. LIPITOR [Concomitant]
     Route: 065
  5. NEURONTIN [Concomitant]
     Route: 065
  6. PRILOSEC [Concomitant]
     Route: 065
  7. METOPROLOL [Concomitant]
     Route: 065
  8. FOLIC ACID [Concomitant]
     Route: 065

REACTIONS (1)
  - MYOCARDIAL INFARCTION [None]
